FAERS Safety Report 4685974-6 (Version None)
Quarter: 2005Q2

REPORT INFORMATION
  Report Type: 
  Country: None (occurrence: None)
  Receive Date: 20050607
  Receipt Date: 20050607
  Transmission Date: 20051028
  Serious: Yes (Life-Threatening, Congenital Anomaly)
  Sender: FDA-Public Use
  Company Number: None

PATIENT
  Age: 4 Year
  Sex: Male
  Weight: 74.8435 kg

DRUGS (1)
  1. OXYCONTIN [Suspect]

REACTIONS (1)
  - DRUG DEPENDENCE [None]
